FAERS Safety Report 20060731 (Version 1)
Quarter: 2021Q4

REPORT INFORMATION
  Report Type: Spontaneous
  Country: None (occurrence: US)
  Receive Date: 20211112
  Receipt Date: 20211112
  Transmission Date: 20220303
  Serious: Yes (Other)
  Sender: FDA-Public Use
  Company Number: US-Jiangsu Hengrui Medicine Co., Ltd.-2121787

PATIENT
  Age: 32 Year
  Sex: Male
  Weight: 88 kg

DRUGS (3)
  1. DEXMEDETOMIDINE HYDROCHLORIDE [Suspect]
     Active Substance: DEXMEDETOMIDINE HYDROCHLORIDE
     Indication: Sedation
  2. FENTANYL [Concomitant]
     Active Substance: FENTANYL
  3. PROPOFOL [Concomitant]
     Active Substance: PROPOFOL

REACTIONS (4)
  - Diabetes insipidus [Recovering/Resolving]
  - Torsade de pointes [Recovering/Resolving]
  - Cardiac arrest [Recovering/Resolving]
  - Electrolyte imbalance [Recovering/Resolving]
